FAERS Safety Report 15359595 (Version 1)
Quarter: 2018Q3

REPORT INFORMATION
  Report Type: Spontaneous
  Country: SE (occurrence: SE)
  Receive Date: 20180907
  Receipt Date: 20180907
  Transmission Date: 20181010
  Serious: Yes (Congenital Anomaly)
  Sender: FDA-Public Use
  Company Number: SE-TEVA-2018-SE-952528

PATIENT
  Age: 40 Year
  Sex: Female

DRUGS (5)
  1. ORUDIS [Concomitant]
     Active Substance: KETOPROFEN
     Route: 065
     Dates: start: 201710
  2. PROPAVAN [Concomitant]
     Active Substance: PROPIOMAZINE
     Route: 065
     Dates: start: 201708
  3. ALVEDON [Concomitant]
     Active Substance: ACETAMINOPHEN
     Route: 065
     Dates: start: 201709
  4. UNKCITODON [Concomitant]
     Dates: start: 201708
  5. SERTRALINE [Suspect]
     Active Substance: SERTRALINE HYDROCHLORIDE
     Indication: DEPRESSION
     Route: 065
     Dates: start: 20180322, end: 20180701

REACTIONS (3)
  - Colitis [Not Recovered/Not Resolved]
  - Diarrhoea [Not Recovered/Not Resolved]
  - Increased tendency to bruise [Not Recovered/Not Resolved]

NARRATIVE: CASE EVENT DATE: 20180520
